FAERS Safety Report 7454514-0 (Version None)
Quarter: 2011Q2

REPORT INFORMATION
  Report Type: 
  Country: None (occurrence: None)
  Receive Date: 20110503
  Receipt Date: 20110421
  Transmission Date: 20111010
  Serious: Yes (Other)
  Sender: FDA-Public Use
  Company Number: PHHY2011US20120

PATIENT
  Sex: Male
  Weight: 120 kg

DRUGS (16)
  1. CYMBALTA [Concomitant]
     Indication: DEPRESSION
     Dosage: 60 MG, BID
     Route: 048
  2. NOVOLOG [Concomitant]
     Indication: DIABETES MELLITUS
     Route: 058
  3. LYRICA [Concomitant]
     Indication: NEUROPATHY PERIPHERAL
     Dosage: 75 MG, QD
     Route: 048
  4. ANDRODERM [Concomitant]
     Dosage: 5 MG
     Route: 048
  5. COMBIVENT [Concomitant]
  6. RECLAST [Suspect]
     Indication: OSTEOPOROSIS
     Dosage: 5MG YEARLY
     Route: 042
  7. METHADONE [Concomitant]
     Dosage: 10 MG, BID
     Route: 048
  8. TRAZODONE HCL [Concomitant]
  9. TRANKENE [Concomitant]
  10. MIACALCIN [Concomitant]
  11. PANCRELIPASE [Concomitant]
  12. VANOS CREAM [Concomitant]
  13. LANTUS [Concomitant]
     Indication: DIABETES MELLITUS
     Route: 058
  14. ZANTAC [Concomitant]
  15. SYMBIOCORT [Concomitant]
  16. PRILOSEC [Concomitant]
     Indication: REFLUX GASTRITIS
     Dosage: 20 MG, UNK
     Route: 048

REACTIONS (1)
  - DEPRESSION [None]
